FAERS Safety Report 8815291 (Version 1)
Quarter: 2012Q4

REPORT INFORMATION
  Report Type: 
  Country: US (occurrence: US)
  Receive Date: 20120928
  Receipt Date: 20120928
  Transmission Date: 20130627
  Serious: Yes (Other)
  Sender: FDA-Public Use
  Company Number: US-ASTRAZENECA-2012SE73009

PATIENT
  Age: 72 Year
  Sex: Female
  Weight: 53.5 kg

DRUGS (8)
  1. SYMBICORT [Suspect]
     Indication: ASTHMA
     Dosage: TWO PUFFS BID
     Route: 055
     Dates: start: 2011
  2. LISINOPRIL [Suspect]
     Indication: HYPERTENSION
     Route: 048
  3. ASPIRIN [Suspect]
     Route: 048
  4. IRON [Concomitant]
     Indication: ANAEMIA
     Dosage: DAILY
     Route: 048
  5. VITAMIN E [Concomitant]
  6. VITAMIN C [Concomitant]
  7. WOMANS DAILY [Concomitant]
     Dosage: DAILY
     Route: 048
  8. VITAMIN D [Concomitant]
     Dosage: DAILY
     Route: 048

REACTIONS (2)
  - Lung neoplasm malignant [Unknown]
  - Platelet count decreased [Unknown]
